FAERS Safety Report 7963118-2 (Version None)
Quarter: 2011Q4

REPORT INFORMATION
  Report Type: 
  Country: None (occurrence: None)
  Receive Date: 20111207
  Receipt Date: 20111202
  Transmission Date: 20120403
  Serious: Yes (Death)
  Sender: FDA-Public Use
  Company Number: DE-ROCHE-1018751

PATIENT
  Sex: Female
  Weight: 37 kg

DRUGS (9)
  1. AVASTIN [Suspect]
     Dosage: 575 MG
     Dates: start: 20111122
  2. PACLITAXEL [Suspect]
     Indication: BREAST CANCER
     Dosage: TOTAL DOSE 99 MG
     Dates: start: 20110905
  3. PACLITAXEL [Suspect]
     Dosage: TOTAL DOSE 99 MG
     Dates: start: 20111115
  4. DOXORUBICIN HCL [Suspect]
     Indication: BREAST CANCER
     Dosage: TOTAL DOSE 25 MG
     Dates: start: 20110905, end: 20111101
  5. DIGITOXIN TAB [Concomitant]
     Dosage: TOTAL DOSE 0.5
     Dates: start: 20100101
  6. VERAPAMIL [Concomitant]
     Dosage: TOTAL 80
     Dates: start: 20100101
  7. AVASTIN [Suspect]
     Indication: BREAST CANCER
     Dates: start: 20110905, end: 20111018
  8. ASPIRIN [Concomitant]
     Dates: start: 20100101
  9. DOXORUBICIN HCL [Suspect]
     Dosage: TOTAL DOSE 25 MG
     Dates: start: 20111115

REACTIONS (1)
  - BREAST CANCER [None]
